FAERS Safety Report 6735529-4 (Version None)
Quarter: 2010Q2

REPORT INFORMATION
  Report Type: 
  Country: None (occurrence: None)
  Receive Date: 20100521
  Receipt Date: 20100511
  Transmission Date: 20101027
  Serious: Yes (Hospitalization)
  Sender: FDA-Public Use
  Company Number: JP-ELI_LILLY_AND_COMPANY-JP200912001957

PATIENT
  Age: 49 Year
  Sex: Male
  Weight: 68.3 kg

DRUGS (13)
  1. PEMETREXED [Suspect]
     Indication: LUNG ADENOCARCINOMA RECURRENT
     Dosage: 500 MG/M2, UNK
     Route: 042
     Dates: start: 20091105, end: 20100415
  2. PICIBANIL [Concomitant]
     Indication: PLEURODESIS
     Dosage: UNK, UNKNOWN
     Route: 034
     Dates: start: 20091026, end: 20091026
  3. PANVITAN [Concomitant]
     Indication: PROPHYLAXIS
     Dosage: 1 G, DAILY (1/D)
     Route: 048
     Dates: start: 20091030, end: 20100428
  4. CYANOCOBALAMIN [Concomitant]
     Indication: PROPHYLAXIS
     Dosage: 1 MG, OTHER
     Route: 030
     Dates: start: 20091030, end: 20100225
  5. LOXONIN [Concomitant]
     Indication: CANCER PAIN
     Dosage: UNK, UNKNOWN
     Route: 065
  6. MUCOSTA [Concomitant]
     Indication: PROPHYLAXIS
     Dosage: UNK, UNKNOWN
     Route: 048
  7. MUCOSTA [Concomitant]
     Dosage: UNK, UNKNOWN
  8. CODEINE SULFATE [Concomitant]
     Indication: COUGH
     Dosage: UNK, UNKNOWN
     Route: 048
     Dates: end: 20100415
  9. MUCODYNE [Concomitant]
     Indication: COUGH
     Dosage: UNK, UNKNOWN
     Route: 048
  10. LENDORMIN [Concomitant]
     Indication: INSOMNIA
     Dosage: UNK, UNKNOWN
     Route: 048
  11. NELBON [Concomitant]
     Dosage: UNK, UNKNOWN
     Route: 065
     Dates: start: 20091116
  12. KYTRIL [Concomitant]
     Indication: PROPHYLAXIS OF NAUSEA AND VOMITING
     Dosage: 300 MG, UNK
     Route: 042
     Dates: start: 20091105, end: 20091105
  13. DECADRON [Concomitant]
     Dosage: UNK, UNKNOWN
     Route: 048
     Dates: start: 20091104, end: 20091106

REACTIONS (1)
  - PULMONARY THROMBOSIS [None]
